FAERS Safety Report 20459569 (Version 3)
Quarter: 2022Q1

REPORT INFORMATION
  Report Type: Spontaneous
  Country: DE (occurrence: DE)
  Receive Date: 20220211
  Receipt Date: 20220228
  Transmission Date: 20220423
  Serious: Yes (Hospitalization)
  Sender: FDA-Public Use
  Company Number: DE-ADRED-00034-01

PATIENT

DRUGS (196)
  1. FUROSEMIDE [Suspect]
     Active Substance: FUROSEMIDE
     Indication: Product used for unknown indication
     Dosage: 160 MG, QD
     Route: 048
  2. FUROSEMIDE [Suspect]
     Active Substance: FUROSEMIDE
     Dosage: 40 MG, QD
     Route: 048
  3. FUROSEMIDE [Suspect]
     Active Substance: FUROSEMIDE
     Dosage: 40 MG, QID
     Route: 048
  4. FUROSEMIDE [Suspect]
     Active Substance: FUROSEMIDE
     Dosage: 40 MG, Q6H
     Route: 048
  5. FUROSEMIDE [Suspect]
     Active Substance: FUROSEMIDE
     Dosage: 160 MG QD
     Route: 048
  6. FUROSEMIDE [Suspect]
     Active Substance: FUROSEMIDE
     Indication: Product used for unknown indication
     Dosage: 160 MILLIGRAM, (160 MILLIGRAM(S)),1 IN 1 DAY
     Route: 048
  7. FUROSEMIDE [Suspect]
     Active Substance: FUROSEMIDE
     Dosage: 160 MILLIGRAM (40 MILLIGRAM, 1 IN 6 HOUR)
     Route: 048
  8. FUROSEMIDE [Suspect]
     Active Substance: FUROSEMIDE
     Dosage: 40 MILLIGRAM, QD, 40 MILLIGRAM)
     Route: 048
  9. FUROSEMIDE [Suspect]
     Active Substance: FUROSEMIDE
     Dosage: 40 MILLIGRAM, QD
     Route: 048
  10. FUROSEMIDE [Suspect]
     Active Substance: FUROSEMIDE
     Dosage: 160 MILLIGRAM, QD
     Route: 048
  11. FUROSEMIDE [Suspect]
     Active Substance: FUROSEMIDE
     Dosage: 160 MILLIGRAM, QD
     Route: 048
  12. FUROSEMIDE [Suspect]
     Active Substance: FUROSEMIDE
     Dosage: UNK
     Route: 048
  13. SIMVASTATIN [Suspect]
     Active Substance: SIMVASTATIN
     Indication: Product used for unknown indication
     Dosage: 40 MG, QD (0-0-1-0)
     Route: 048
  14. AMBROXOL HYDROCHLORIDE [Suspect]
     Active Substance: AMBROXOL HYDROCHLORIDE
     Indication: Product used for unknown indication
     Dosage: 30 GTT DROPS, PRN
     Route: 048
  15. TIOTROPIUM BROMIDE [Suspect]
     Active Substance: TIOTROPIUM BROMIDE
     Indication: Product used for unknown indication
     Dosage: 18 ?G, BID, INHALATIONAL
     Route: 050
  16. TIOTROPIUM BROMIDE [Suspect]
     Active Substance: TIOTROPIUM BROMIDE
     Dosage: 36 ?G, QD, INHALATIONAL
     Route: 050
  17. TIOTROPIUM BROMIDE [Suspect]
     Active Substance: TIOTROPIUM BROMIDE
     Dosage: 2 DF, QD, INHALATIONAL
     Route: 050
  18. TIOTROPIUM BROMIDE [Suspect]
     Active Substance: TIOTROPIUM BROMIDE
     Dosage: 36 ?G, BID, INHALATIONAL
     Route: 050
  19. TIOTROPIUM BROMIDE [Suspect]
     Active Substance: TIOTROPIUM BROMIDE
     Dosage: 1 DF, QD, INHALATIONAL
     Route: 050
  20. TIOTROPIUM BROMIDE [Suspect]
     Active Substance: TIOTROPIUM BROMIDE
     Dosage: UNK
     Route: 055
  21. FENTANYL [Suspect]
     Active Substance: FENTANYL
     Indication: Product used for unknown indication
     Dosage: 50 MG, QD
     Route: 048
  22. FENTANYL [Suspect]
     Active Substance: FENTANYL
     Route: 065
  23. CHOLECALCIFEROL [Suspect]
     Active Substance: CHOLECALCIFEROL
     Indication: Product used for unknown indication
     Dosage: 100 IU, QD
     Route: 048
  24. CHOLECALCIFEROL [Suspect]
     Active Substance: CHOLECALCIFEROL
     Dosage: 1 DF, QD
     Route: 048
  25. CHOLECALCIFEROL [Suspect]
     Active Substance: CHOLECALCIFEROL
     Dosage: 100 UNK, QD
     Route: 048
  26. CHOLECALCIFEROL [Suspect]
     Active Substance: CHOLECALCIFEROL
     Route: 065
  27. LACTULOSE [Suspect]
     Active Substance: LACTULOSE
     Indication: Product used for unknown indication
     Dosage: 1 DF, QD
     Route: 048
  28. LACTULOSE [Suspect]
     Active Substance: LACTULOSE
     Dosage: 1 UNK
     Route: 048
  29. LACTULOSE [Suspect]
     Active Substance: LACTULOSE
     Dosage: 1 DOSAGE FORM, QD
     Route: 048
  30. EZETIMIBE [Suspect]
     Active Substance: EZETIMIBE
     Indication: Product used for unknown indication
     Dosage: 10 MG, QD
     Route: 048
  31. EZETIMIBE [Suspect]
     Active Substance: EZETIMIBE
     Dosage: UNK
     Route: 065
  32. SPIRONOLACTONE [Suspect]
     Active Substance: SPIRONOLACTONE
     Indication: Product used for unknown indication
     Dosage: 200 MG, BID
     Route: 048
  33. SPIRONOLACTONE [Suspect]
     Active Substance: SPIRONOLACTONE
     Dosage: 100 MG, BID
     Route: 048
  34. SPIRONOLACTONE [Suspect]
     Active Substance: SPIRONOLACTONE
     Dosage: 100 MG, QD
     Route: 048
  35. SPIRONOLACTONE [Suspect]
     Active Substance: SPIRONOLACTONE
     Dosage: 200 MG, BID
     Route: 048
  36. SPIRONOLACTONE [Suspect]
     Active Substance: SPIRONOLACTONE
     Dosage: 2 DF, QD
     Route: 048
  37. SPIRONOLACTONE [Suspect]
     Active Substance: SPIRONOLACTONE
     Dosage: (200 MILLIGRAM(S)) IN 12 HOUR
     Route: 048
  38. SPIRONOLACTONE [Suspect]
     Active Substance: SPIRONOLACTONE
     Dosage: (100 MILLIGRAM(S)) IN 1 DAY
     Route: 048
  39. SPIRONOLACTONE [Suspect]
     Active Substance: SPIRONOLACTONE
     Dosage: (200 MILLIGRAM(S)) IN 12 HOUR
     Route: 048
  40. SPIRONOLACTONE [Suspect]
     Active Substance: SPIRONOLACTONE
     Dosage: 2.0 DOSAGE FORM (2 DOSAGE FORM),1 IN 1 DAY
     Route: 048
  41. SPIRONOLACTONE [Suspect]
     Active Substance: SPIRONOLACTONE
     Dosage: 400.0 MILLIGRAM(S) (200 MILLIGRAM(S)),1 IN 12 HOUR
     Route: 048
  42. SPIRONOLACTONE [Suspect]
     Active Substance: SPIRONOLACTONE
     Dosage: 200.0 MILLIGRAM(S) (100 MILLIGRAM(S)),1 IN 12 HOUR
     Route: 048
  43. SPIRONOLACTONE [Suspect]
     Active Substance: SPIRONOLACTONE
     Dosage: 100.0 MILLIGRAM(S) (100 MILLIGRAM(S)),1 IN 1 DAY
     Route: 048
  44. SPIRONOLACTONE [Suspect]
     Active Substance: SPIRONOLACTONE
     Dosage: (200 MILLIGRAM(S)) IN 12 HOUR
     Route: 048
  45. SPIRONOLACTONE [Suspect]
     Active Substance: SPIRONOLACTONE
     Dosage: (100 MILLIGRAM(S)) IN 1 DAY
     Route: 048
  46. SPIRONOLACTONE [Suspect]
     Active Substance: SPIRONOLACTONE
     Dosage: (200 MILLIGRAM(S)) IN 12 HOUR
     Route: 048
  47. SPIRONOLACTONE [Suspect]
     Active Substance: SPIRONOLACTONE
     Dosage: (100 MILLIGRAM(S)) IN 1 DAY
     Route: 048
  48. SPIRONOLACTONE [Suspect]
     Active Substance: SPIRONOLACTONE
     Dosage: (200 MILLIGRAM(S)) IN 1 DAY
     Route: 048
  49. SPIRONOLACTONE [Suspect]
     Active Substance: SPIRONOLACTONE
     Dosage: (200 MILLIGRAM(S)) IN 12 HOUR
     Route: 048
  50. SPIRONOLACTONE [Suspect]
     Active Substance: SPIRONOLACTONE
     Dosage: (100 MILLIGRAM(S)) IN 12 HOUR
     Route: 048
  51. SPIRONOLACTONE [Suspect]
     Active Substance: SPIRONOLACTONE
     Dosage: (100 MILLIGRAM(S)) IN 1 DAY
     Route: 048
  52. SPIRONOLACTONE [Suspect]
     Active Substance: SPIRONOLACTONE
     Dosage: (200 MILLIGRAM(S)) IN 12 HOUR
     Route: 048
  53. SPIRONOLACTONE [Suspect]
     Active Substance: SPIRONOLACTONE
     Dosage: UNK
     Route: 048
  54. URSODIOL [Suspect]
     Active Substance: URSODIOL
     Indication: Product used for unknown indication
     Dosage: 500 MG, BID
     Route: 048
  55. URSODIOL [Suspect]
     Active Substance: URSODIOL
     Dosage: 1000 MG, BID
     Route: 048
  56. URSODIOL [Suspect]
     Active Substance: URSODIOL
     Dosage: UNK
     Route: 048
  57. HYDROCHLOROTHIAZIDE [Suspect]
     Active Substance: HYDROCHLOROTHIAZIDE
     Indication: Product used for unknown indication
     Dosage: 25 MG, QD
     Route: 048
  58. PENTAZOCINE HYDROCHLORIDE [Suspect]
     Active Substance: PENTAZOCINE HYDROCHLORIDE
     Indication: Product used for unknown indication
     Dosage: 30 GTT DROPS, TID
     Route: 048
  59. PENTAZOCINE HYDROCHLORIDE [Suspect]
     Active Substance: PENTAZOCINE HYDROCHLORIDE
     Dosage: 90 DF, QD
     Route: 048
  60. PENTAZOCINE HYDROCHLORIDE [Suspect]
     Active Substance: PENTAZOCINE HYDROCHLORIDE
     Dosage: 1 UNK
     Route: 048
  61. PENTAZOCINE HYDROCHLORIDE [Suspect]
     Active Substance: PENTAZOCINE HYDROCHLORIDE
     Dosage: 90.0 DOSAGE FORM (90 DOSAGE FORM),1 IN 1 DAY
     Route: 048
  62. PENTAZOCINE HYDROCHLORIDE [Suspect]
     Active Substance: PENTAZOCINE HYDROCHLORIDE
     Dosage: ,1 IN 8 HOUR
     Route: 048
  63. PENTAZOCINE HYDROCHLORIDE [Suspect]
     Active Substance: PENTAZOCINE HYDROCHLORIDE
     Dosage: 1.0 DOSAGE FORM (1 DOSAGE FORM),1 IN 1 DAY
     Route: 048
  64. PENTAZOCINE HYDROCHLORIDE [Suspect]
     Active Substance: PENTAZOCINE HYDROCHLORIDE
     Dosage: (1 DOSAGE FORM) IN 1 DAY
     Route: 048
  65. PENTAZOCINE HYDROCHLORIDE [Suspect]
     Active Substance: PENTAZOCINE HYDROCHLORIDE
     Dosage: 90 DOSAGE FORM) IN 1 DAY
     Route: 048
  66. PENTAZOCINE HYDROCHLORIDE [Suspect]
     Active Substance: PENTAZOCINE HYDROCHLORIDE
     Dosage: 30 DROP, Q8H
     Route: 048
  67. PENTAZOCINE HYDROCHLORIDE [Suspect]
     Active Substance: PENTAZOCINE HYDROCHLORIDE
     Dosage: UNK
     Route: 048
  68. POTASSIUM CHLORIDE [Suspect]
     Active Substance: POTASSIUM CHLORIDE
     Indication: Product used for unknown indication
     Dosage: 100 MG, QD; (100 MILLIGRAM(S)) IN 1 DAY
     Route: 048
  69. METAMIZOLE SODIUM [Suspect]
     Active Substance: METAMIZOLE SODIUM
     Indication: Product used for unknown indication
     Dosage: 30 GTT DROPS, TID
     Route: 048
  70. METAMIZOLE SODIUM [Suspect]
     Active Substance: METAMIZOLE SODIUM
     Indication: Product used for unknown indication
     Dosage: 90.0 DROP(S) (30 DROP(S)),1 IN 8 HOUR
     Route: 048
  71. METAMIZOLE SODIUM [Suspect]
     Active Substance: METAMIZOLE SODIUM
     Dosage: UNK
     Route: 048
  72. ACETAMINOPHEN [Suspect]
     Active Substance: ACETAMINOPHEN
     Indication: Product used for unknown indication
     Dosage: 90 DF, QD
     Route: 048
  73. ACETAMINOPHEN [Suspect]
     Active Substance: ACETAMINOPHEN
     Dosage: 30 GTT DROPS, TID
     Route: 048
  74. ACETAMINOPHEN [Suspect]
     Active Substance: ACETAMINOPHEN
     Dosage: 1 DF, QD
     Route: 048
  75. ACETAMINOPHEN [Suspect]
     Active Substance: ACETAMINOPHEN
     Dosage: 90.0 DOSAGE FORM (90 DOSAGE FORM),1 IN 1 DAY
     Route: 048
  76. ACETAMINOPHEN [Suspect]
     Active Substance: ACETAMINOPHEN
     Dosage: 3.0 DOSAGE FORM ( 1 DOSAGE FORM),1 IN 8 HOUR
     Route: 048
  77. ACETAMINOPHEN [Suspect]
     Active Substance: ACETAMINOPHEN
     Dosage: 1.0 DOSAGE FORM (1 DOSAGE FORM),1 IN 1 DAY
     Route: 048
  78. ACETAMINOPHEN [Suspect]
     Active Substance: ACETAMINOPHEN
     Dosage: 90 DF, QD
     Route: 048
  79. MAGNESIUM [Suspect]
     Active Substance: MAGNESIUM
     Indication: Product used for unknown indication
     Dosage: 2 DOSAGE FORM, BID
     Route: 048
  80. MAGNESIUM [Suspect]
     Active Substance: MAGNESIUM
     Dosage: UNK
     Route: 048
  81. ACETAMINOPHEN\PENTAZOCINE HYDROCHLORIDE [Suspect]
     Active Substance: ACETAMINOPHEN\PENTAZOCINE HYDROCHLORIDE
     Indication: Product used for unknown indication
     Dosage: 90 DF, QD
     Route: 048
  82. ACETAMINOPHEN\PENTAZOCINE HYDROCHLORIDE [Suspect]
     Active Substance: ACETAMINOPHEN\PENTAZOCINE HYDROCHLORIDE
     Dosage: 30 GTT DROPS, TID
     Route: 048
  83. ACETAMINOPHEN\PENTAZOCINE HYDROCHLORIDE [Suspect]
     Active Substance: ACETAMINOPHEN\PENTAZOCINE HYDROCHLORIDE
     Dosage: 1 DF, QD
     Route: 048
  84. ACETAMINOPHEN\PENTAZOCINE HYDROCHLORIDE [Suspect]
     Active Substance: ACETAMINOPHEN\PENTAZOCINE HYDROCHLORIDE
     Dosage: 90 DF, QD
     Route: 048
  85. ACETAMINOPHEN\PENTAZOCINE HYDROCHLORIDE [Suspect]
     Active Substance: ACETAMINOPHEN\PENTAZOCINE HYDROCHLORIDE
     Dosage: 30 DROP, Q8H
     Route: 048
  86. ACETAMINOPHEN\PENTAZOCINE HYDROCHLORIDE [Suspect]
     Active Substance: ACETAMINOPHEN\PENTAZOCINE HYDROCHLORIDE
     Dosage: 1 DF, QD
     Route: 048
  87. ACETAMINOPHEN\PENTAZOCINE HYDROCHLORIDE [Suspect]
     Active Substance: ACETAMINOPHEN\PENTAZOCINE HYDROCHLORIDE
     Dosage: 90 DF, QD
     Route: 048
  88. ACETAMINOPHEN\PENTAZOCINE HYDROCHLORIDE [Suspect]
     Active Substance: ACETAMINOPHEN\PENTAZOCINE HYDROCHLORIDE
     Dosage: 1 DF, QD
     Route: 048
  89. ACETAMINOPHEN\PENTAZOCINE HYDROCHLORIDE [Suspect]
     Active Substance: ACETAMINOPHEN\PENTAZOCINE HYDROCHLORIDE
     Dosage: 1 IN 8 HOUR
     Route: 048
  90. ACETAMINOPHEN\PENTAZOCINE HYDROCHLORIDE [Suspect]
     Active Substance: ACETAMINOPHEN\PENTAZOCINE HYDROCHLORIDE
     Dosage: 90 DF, QD
     Route: 048
  91. ACETAMINOPHEN\PENTAZOCINE HYDROCHLORIDE [Suspect]
     Active Substance: ACETAMINOPHEN\PENTAZOCINE HYDROCHLORIDE
     Dosage: 1 DOSAGE FORM) IN 1 DAY
     Route: 048
  92. ACETAMINOPHEN\PENTAZOCINE HYDROCHLORIDE [Suspect]
     Active Substance: ACETAMINOPHEN\PENTAZOCINE HYDROCHLORIDE
     Dosage: 30 DROP, Q8H
     Route: 048
  93. ACETAMINOPHEN\PENTAZOCINE HYDROCHLORIDE [Suspect]
     Active Substance: ACETAMINOPHEN\PENTAZOCINE HYDROCHLORIDE
     Dosage: (90 DOSAGE FORM) IN 1 DAY
     Route: 048
  94. ACETAMINOPHEN\PENTAZOCINE HYDROCHLORIDE [Suspect]
     Active Substance: ACETAMINOPHEN\PENTAZOCINE HYDROCHLORIDE
     Dosage: UNK
     Route: 048
  95. ACETAMINOPHEN\PENTAZOCINE HYDROCHLORIDE [Suspect]
     Active Substance: ACETAMINOPHEN\PENTAZOCINE HYDROCHLORIDE
     Dosage: UNK
     Route: 048
  96. FLUTICASONE PROPIONATE\SALMETEROL XINAFOATE [Suspect]
     Active Substance: FLUTICASONE PROPIONATE\SALMETEROL XINAFOATE
     Indication: Product used for unknown indication
     Dosage: 2 DF, QD, INHALATIONAL
     Route: 050
  97. FLUTICASONE PROPIONATE\SALMETEROL XINAFOATE [Suspect]
     Active Substance: FLUTICASONE PROPIONATE\SALMETEROL XINAFOATE
     Dosage: 1 DF, QD, INHALATIONAL
     Route: 050
  98. FLUTICASONE PROPIONATE\SALMETEROL XINAFOATE [Suspect]
     Active Substance: FLUTICASONE PROPIONATE\SALMETEROL XINAFOATE
     Dosage: 2 UNK, UNK; INHALATIONAL
     Route: 050
  99. FLUTICASONE PROPIONATE\SALMETEROL XINAFOATE [Suspect]
     Active Substance: FLUTICASONE PROPIONATE\SALMETEROL XINAFOATE
     Dosage: (2 DOSAGE FORM),1 IN 1 DAY
     Route: 055
  100. FLUTICASONE PROPIONATE\SALMETEROL XINAFOATE [Suspect]
     Active Substance: FLUTICASONE PROPIONATE\SALMETEROL XINAFOATE
     Dosage: (1 DOSAGE FORM),1 IN 1 DAY
     Route: 055
  101. FLUTICASONE PROPIONATE\SALMETEROL XINAFOATE [Suspect]
     Active Substance: FLUTICASONE PROPIONATE\SALMETEROL XINAFOATE
     Dosage: (1 DOSAGE FORM),1 IN 1 DAY
     Route: 055
  102. FLUTICASONE PROPIONATE\SALMETEROL XINAFOATE [Suspect]
     Active Substance: FLUTICASONE PROPIONATE\SALMETEROL XINAFOATE
     Dosage: (2 DOSAGE FORM),1 IN 1 DAY
     Route: 055
  103. FLUTICASONE PROPIONATE\SALMETEROL XINAFOATE [Suspect]
     Active Substance: FLUTICASONE PROPIONATE\SALMETEROL XINAFOATE
     Dosage: UNK
     Route: 055
  104. FLUTICASONE PROPIONATE\SALMETEROL XINAFOATE [Suspect]
     Active Substance: FLUTICASONE PROPIONATE\SALMETEROL XINAFOATE
     Dosage: UNK
     Route: 055
  105. ACETAMINOPHEN\CAFFEINE\PHENYLEPHRINE HYDROCHLORIDE [Suspect]
     Active Substance: ACETAMINOPHEN\CAFFEINE\PHENYLEPHRINE HYDROCHLORIDE
     Indication: Product used for unknown indication
     Dosage: 30 GTT DROPS, Q8H
     Route: 048
  106. ACETAMINOPHEN\CAFFEINE\PHENYLEPHRINE HYDROCHLORIDE [Suspect]
     Active Substance: ACETAMINOPHEN\CAFFEINE\PHENYLEPHRINE HYDROCHLORIDE
     Dosage: 30 GTT DROPS, TID
     Route: 048
  107. ACETAMINOPHEN\CAFFEINE\PHENYLEPHRINE HYDROCHLORIDE [Suspect]
     Active Substance: ACETAMINOPHEN\CAFFEINE\PHENYLEPHRINE HYDROCHLORIDE
     Dosage: ,1 IN 8 HOUR
     Route: 048
  108. ACETAMINOPHEN\CAFFEINE\PHENYLEPHRINE HYDROCHLORIDE [Suspect]
     Active Substance: ACETAMINOPHEN\CAFFEINE\PHENYLEPHRINE HYDROCHLORIDE
     Dosage: UNK
     Route: 048
  109. MAGNESIUM CITRATE\MAGNESIUM OXIDE\PYRIDOXINE HYDROCHLORIDE [Suspect]
     Active Substance: MAGNESIUM CITRATE\MAGNESIUM OXIDE\PYRIDOXINE HYDROCHLORIDE
     Indication: Product used for unknown indication
     Dosage: UNK UNK, BID
     Route: 048
  110. MAGNESIUM CITRATE\MAGNESIUM OXIDE\PYRIDOXINE HYDROCHLORIDE [Suspect]
     Active Substance: MAGNESIUM CITRATE\MAGNESIUM OXIDE\PYRIDOXINE HYDROCHLORIDE
     Dosage: 1 DF, QD
     Route: 048
  111. MAGNESIUM CITRATE\MAGNESIUM OXIDE\PYRIDOXINE HYDROCHLORIDE [Suspect]
     Active Substance: MAGNESIUM CITRATE\MAGNESIUM OXIDE\PYRIDOXINE HYDROCHLORIDE
     Dosage: 2 DF, QD
     Route: 048
  112. MAGNESIUM CITRATE\MAGNESIUM OXIDE\PYRIDOXINE HYDROCHLORIDE [Suspect]
     Active Substance: MAGNESIUM CITRATE\MAGNESIUM OXIDE\PYRIDOXINE HYDROCHLORIDE
     Dosage: 2 DF, QD
     Route: 048
  113. MAGNESIUM CITRATE\MAGNESIUM OXIDE\PYRIDOXINE HYDROCHLORIDE [Suspect]
     Active Substance: MAGNESIUM CITRATE\MAGNESIUM OXIDE\PYRIDOXINE HYDROCHLORIDE
     Dosage: 2 DF, QD
     Route: 048
  114. MAGNESIUM CITRATE\MAGNESIUM OXIDE\PYRIDOXINE HYDROCHLORIDE [Suspect]
     Active Substance: MAGNESIUM CITRATE\MAGNESIUM OXIDE\PYRIDOXINE HYDROCHLORIDE
     Dosage: 2 DF, QD
     Route: 048
  115. MAGNESIUM CITRATE\MAGNESIUM OXIDE\PYRIDOXINE HYDROCHLORIDE [Suspect]
     Active Substance: MAGNESIUM CITRATE\MAGNESIUM OXIDE\PYRIDOXINE HYDROCHLORIDE
     Dosage: UNK, Q12H
     Route: 048
  116. MAGNESIUM CITRATE\MAGNESIUM OXIDE\PYRIDOXINE HYDROCHLORIDE [Suspect]
     Active Substance: MAGNESIUM CITRATE\MAGNESIUM OXIDE\PYRIDOXINE HYDROCHLORIDE
     Dosage: 2 DF, QD
     Route: 048
  117. MAGNESIUM CITRATE\MAGNESIUM OXIDE\PYRIDOXINE HYDROCHLORIDE [Suspect]
     Active Substance: MAGNESIUM CITRATE\MAGNESIUM OXIDE\PYRIDOXINE HYDROCHLORIDE
     Dosage: 1 DF, QD
     Route: 048
  118. MAGNESIUM CITRATE\MAGNESIUM OXIDE\PYRIDOXINE HYDROCHLORIDE [Suspect]
     Active Substance: MAGNESIUM CITRATE\MAGNESIUM OXIDE\PYRIDOXINE HYDROCHLORIDE
     Dosage: 2 DF, QD
     Route: 048
  119. MAGNESIUM CITRATE\MAGNESIUM OXIDE\PYRIDOXINE HYDROCHLORIDE [Suspect]
     Active Substance: MAGNESIUM CITRATE\MAGNESIUM OXIDE\PYRIDOXINE HYDROCHLORIDE
     Dosage: 1 DF, QD
     Route: 048
  120. MAGNESIUM CITRATE\MAGNESIUM OXIDE\PYRIDOXINE HYDROCHLORIDE [Suspect]
     Active Substance: MAGNESIUM CITRATE\MAGNESIUM OXIDE\PYRIDOXINE HYDROCHLORIDE
     Dosage: UNK, Q12H
     Route: 048
  121. MAGNESIUM CITRATE\MAGNESIUM OXIDE\PYRIDOXINE HYDROCHLORIDE [Suspect]
     Active Substance: MAGNESIUM CITRATE\MAGNESIUM OXIDE\PYRIDOXINE HYDROCHLORIDE
     Dosage: UNK
     Route: 048
  122. MANGANESE SULFATE [Suspect]
     Active Substance: MANGANESE SULFATE
     Indication: Product used for unknown indication
     Dosage: UNK UNK, BID
     Route: 048
  123. MANGANESE SULFATE [Suspect]
     Active Substance: MANGANESE SULFATE
     Dosage: 1 DF, QD
     Route: 048
  124. MANGANESE SULFATE [Suspect]
     Active Substance: MANGANESE SULFATE
     Dosage: 2 DF, QD
     Route: 048
  125. MANGANESE SULFATE [Suspect]
     Active Substance: MANGANESE SULFATE
     Dosage: 2 DF, QD
     Route: 048
  126. MANGANESE SULFATE [Suspect]
     Active Substance: MANGANESE SULFATE
     Dosage: 2 DF, QD
     Route: 048
  127. MANGANESE SULFATE [Suspect]
     Active Substance: MANGANESE SULFATE
     Dosage: 2 DF, QD
     Route: 048
  128. PANTOPRAZOLE SODIUM [Suspect]
     Active Substance: PANTOPRAZOLE SODIUM
     Indication: Product used for unknown indication
     Dosage: (40 MILLIGRAM(S)) IN 1 DAY
     Route: 048
  129. PANTOPRAZOLE SODIUM [Suspect]
     Active Substance: PANTOPRAZOLE SODIUM
     Dosage: (40 MILLIGRAM(S)) IN 1 DAY
     Route: 048
  130. PANTOPRAZOLE SODIUM [Suspect]
     Active Substance: PANTOPRAZOLE SODIUM
     Dosage: (40 MILLIGRAM(S)) IN 1 DAY
     Route: 048
  131. PANTOPRAZOLE SODIUM [Suspect]
     Active Substance: PANTOPRAZOLE SODIUM
     Dosage: (40 MILLIGRAM(S)) IN 1 DAY
     Route: 048
  132. PANTOPRAZOLE SODIUM [Suspect]
     Active Substance: PANTOPRAZOLE SODIUM
     Dosage: UNK
     Route: 048
  133. LACTULOSE [Suspect]
     Active Substance: LACTULOSE
     Indication: Product used for unknown indication
     Dosage: 1 DF, QD
     Route: 048
  134. LACTULOSE [Suspect]
     Active Substance: LACTULOSE
     Dosage: 1 DF, QD
     Route: 048
  135. LACTULOSE [Suspect]
     Active Substance: LACTULOSE
     Dosage: 1 UNK
     Route: 048
  136. LACTULOSE [Suspect]
     Active Substance: LACTULOSE
     Dosage: 1 DF, QD
     Route: 048
  137. LACTULOSE [Suspect]
     Active Substance: LACTULOSE
     Dosage: 1 DF, QD
     Route: 048
  138. LACTULOSE [Suspect]
     Active Substance: LACTULOSE
     Dosage: 1 DF, QD (1 MEASURING CUP)
     Route: 048
  139. LACTULOSE [Suspect]
     Active Substance: LACTULOSE
     Dosage: 1 DF, QD (1 MEASURING CUP)
     Route: 048
  140. LACTULOSE [Suspect]
     Active Substance: LACTULOSE
     Dosage: UNK
     Route: 048
  141. LACTULOSE [Suspect]
     Active Substance: LACTULOSE
     Dosage: UNK
     Route: 048
  142. LACTULOSE [Suspect]
     Active Substance: LACTULOSE
     Dosage: UNK
     Route: 048
  143. BENSERAZIDE HYDROCHLORIDE [Suspect]
     Active Substance: BENSERAZIDE HYDROCHLORIDE
     Indication: Product used for unknown indication
     Dosage: 100 MG, BID
     Route: 048
  144. BENSERAZIDE HYDROCHLORIDE [Suspect]
     Active Substance: BENSERAZIDE HYDROCHLORIDE
     Dosage: 100 MG, Q12H
     Route: 048
  145. BENSERAZIDE HYDROCHLORIDE [Suspect]
     Active Substance: BENSERAZIDE HYDROCHLORIDE
     Dosage: 200 MG, Q12H
     Route: 048
  146. BENSERAZIDE HYDROCHLORIDE [Suspect]
     Active Substance: BENSERAZIDE HYDROCHLORIDE
     Dosage: 100 MG, Q12H
     Route: 048
  147. BENSERAZIDE HYDROCHLORIDE [Suspect]
     Active Substance: BENSERAZIDE HYDROCHLORIDE
     Dosage: 100 MG
     Route: 048
  148. BENSERAZIDE HYDROCHLORIDE [Suspect]
     Active Substance: BENSERAZIDE HYDROCHLORIDE
     Dosage: 100 MG, Q12H
     Route: 048
  149. BENSERAZIDE HYDROCHLORIDE [Suspect]
     Active Substance: BENSERAZIDE HYDROCHLORIDE
     Dosage: UNK
     Route: 048
  150. RAPAMUNE [Suspect]
     Active Substance: SIROLIMUS
     Indication: Product used for unknown indication
     Dosage: 1 MG, QD
     Route: 048
  151. RAPAMUNE [Suspect]
     Active Substance: SIROLIMUS
     Dosage: UNK
     Route: 048
  152. PANTOPRAZOLE SODIUM [Suspect]
     Active Substance: PANTOPRAZOLE SODIUM
     Indication: Product used for unknown indication
     Dosage: 40 MG, QD
     Route: 048
  153. PANTOPRAZOLE SODIUM [Suspect]
     Active Substance: PANTOPRAZOLE SODIUM
     Dosage: 40.0 MILLIGRAM(S) (40 MILLIGRAM(S)),1 IN 1 DAY
     Route: 048
  154. PANTOPRAZOLE SODIUM [Suspect]
     Active Substance: PANTOPRAZOLE SODIUM
     Dosage: UNK
     Route: 048
  155. AZATHIOPRINE [Suspect]
     Active Substance: AZATHIOPRINE
     Indication: Product used for unknown indication
     Dosage: 50 MG, QD
     Route: 048
  156. AZATHIOPRINE [Suspect]
     Active Substance: AZATHIOPRINE
     Dosage: 50 MILLIGRAM(S)) IN 1 DAY
     Route: 048
  157. AZATHIOPRINE [Suspect]
     Active Substance: AZATHIOPRINE
     Dosage: 50.0 MILLIGRAM(S) (50 MILLIGRAM(S)),1 IN 1 DAY
     Route: 048
  158. AZATHIOPRINE [Suspect]
     Active Substance: AZATHIOPRINE
     Dosage: 50 MILLIGRAM(S)) IN 1 DAY
     Route: 048
  159. AZATHIOPRINE [Suspect]
     Active Substance: AZATHIOPRINE
     Dosage: (50 MILLIGRAM(S))
     Route: 048
  160. AZATHIOPRINE [Suspect]
     Active Substance: AZATHIOPRINE
     Dosage: (50 MILLIGRAM(S)) IN 1 DAY
     Route: 048
  161. CITRIC ACID MONOHYDRATE\POTASSIUM BICARBONATE\POTASSIUM CITRATE [Suspect]
     Active Substance: CITRIC ACID MONOHYDRATE\POTASSIUM BICARBONATE\POTASSIUM CITRATE
     Indication: Product used for unknown indication
     Dosage: 100 MG, QD
     Route: 048
  162. CITRIC ACID MONOHYDRATE\POTASSIUM BICARBONATE\POTASSIUM CITRATE [Suspect]
     Active Substance: CITRIC ACID MONOHYDRATE\POTASSIUM BICARBONATE\POTASSIUM CITRATE
     Dosage: UNK
     Route: 048
  163. CITRIC ACID MONOHYDRATE\POTASSIUM BICARBONATE\POTASSIUM CITRATE [Suspect]
     Active Substance: CITRIC ACID MONOHYDRATE\POTASSIUM BICARBONATE\POTASSIUM CITRATE
     Dosage: UNK
     Route: 048
  164. CITRIC ACID MONOHYDRATE\POTASSIUM BICARBONATE\POTASSIUM CITRATE [Suspect]
     Active Substance: CITRIC ACID MONOHYDRATE\POTASSIUM BICARBONATE\POTASSIUM CITRATE
     Route: 048
  165. MAGNESIUM [Suspect]
     Active Substance: MAGNESIUM
     Indication: Product used for unknown indication
     Dosage: 2 DF, QD
     Route: 048
  166. MAGNESIUM [Suspect]
     Active Substance: MAGNESIUM
     Dosage: 1 DF, QD
     Route: 048
  167. MAGNESIUM [Suspect]
     Active Substance: MAGNESIUM
     Dosage: UNK UNK, BID
     Route: 048
  168. MAGNESIUM [Suspect]
     Active Substance: MAGNESIUM
     Dosage: 2 DF, QD
     Route: 048
  169. MAGNESIUM [Suspect]
     Active Substance: MAGNESIUM
     Dosage: 2 DF, QD
     Route: 048
  170. MAGNESIUM [Suspect]
     Active Substance: MAGNESIUM
     Dosage: 2 DF, QD
     Route: 048
  171. MAGNESIUM [Suspect]
     Active Substance: MAGNESIUM
     Dosage: UNK
     Route: 048
  172. BENSERAZIDE\LEVODOPA [Suspect]
     Active Substance: BENSERAZIDE\LEVODOPA
     Indication: Product used for unknown indication
     Dosage: 100 MG, QD
     Route: 048
  173. BENSERAZIDE\LEVODOPA [Suspect]
     Active Substance: BENSERAZIDE\LEVODOPA
     Dosage: 1 DF, QD, INHALATIONAL
     Route: 050
  174. BENSERAZIDE\LEVODOPA [Suspect]
     Active Substance: BENSERAZIDE\LEVODOPA
     Dosage: 100 MG, BID
     Route: 048
  175. BENSERAZIDE\LEVODOPA [Suspect]
     Active Substance: BENSERAZIDE\LEVODOPA
     Dosage: 1.0 DOSAGE FORM (1 DOSAGE FORM),1 IN 1 DAY
     Route: 055
  176. BENSERAZIDE\LEVODOPA [Suspect]
     Active Substance: BENSERAZIDE\LEVODOPA
     Dosage: 200.0 MILLIGRAM(S) (100 MILLIGRAM(S)),1 IN 12 HOUR
     Route: 048
  177. BENSERAZIDE\LEVODOPA [Suspect]
     Active Substance: BENSERAZIDE\LEVODOPA
     Dosage: 100.0 MILLIGRAM(S) (100 MILLIGRAM(S)),1 IN 1 DAY
     Route: 048
  178. BENSERAZIDE\LEVODOPA [Suspect]
     Active Substance: BENSERAZIDE\LEVODOPA
     Dosage: (100 MILLIGRAM(S)) IN 1 DAY
     Route: 048
  179. BENSERAZIDE\LEVODOPA [Suspect]
     Active Substance: BENSERAZIDE\LEVODOPA
     Dosage: 1 DOSAGE FORM) IN 1 DAY
     Route: 055
  180. BENSERAZIDE\LEVODOPA [Suspect]
     Active Substance: BENSERAZIDE\LEVODOPA
     Dosage: UNK
     Route: 048
  181. NOVALGIN (METAMIZOLE SODIUM) [Suspect]
     Active Substance: METAMIZOLE SODIUM
     Indication: Product used for unknown indication
     Dosage: 30 DROP, Q8H
     Route: 048
  182. NOVALGIN (METAMIZOLE SODIUM) [Suspect]
     Active Substance: METAMIZOLE SODIUM
     Dosage: 30 DROP, Q8H
     Route: 048
  183. NOVALGIN (METAMIZOLE SODIUM) [Suspect]
     Active Substance: METAMIZOLE SODIUM
     Dosage: UNK
     Route: 048
  184. NOVALGIN (METAMIZOLE SODIUM) [Suspect]
     Active Substance: METAMIZOLE SODIUM
     Dosage: UNK
     Route: 048
  185. MAGNESIUM [Suspect]
     Active Substance: MAGNESIUM
     Indication: Product used for unknown indication
     Dosage: 4 DF, Q12H
     Route: 048
  186. ACETAMINOPHEN\CAFFEINE\PROPYPHENAZONE [Suspect]
     Active Substance: ACETAMINOPHEN\CAFFEINE\PROPYPHENAZONE
     Indication: Product used for unknown indication
     Dosage: 30 DROP, Q8H
     Route: 048
  187. SIROLIMUS [Suspect]
     Active Substance: SIROLIMUS
     Indication: Product used for unknown indication
     Dosage: 1 MG, QD
     Route: 048
  188. SIROLIMUS [Suspect]
     Active Substance: SIROLIMUS
     Dosage: UNK
     Route: 048
  189. AZATHIOPRINE [Suspect]
     Active Substance: AZATHIOPRINE
     Indication: Product used for unknown indication
     Dosage: 50 MG, QD
     Route: 048
  190. AZATHIOPRINE [Suspect]
     Active Substance: AZATHIOPRINE
     Dosage: UNK
     Route: 048
  191. MAGNESIUM [Suspect]
     Active Substance: MAGNESIUM
     Indication: Product used for unknown indication
     Dosage: UNK
     Route: 048
  192. AMBROXOL HYDROCHLORIDE [Concomitant]
     Active Substance: AMBROXOL HYDROCHLORIDE
     Indication: Product used for unknown indication
     Dosage: UNK
     Route: 065
  193. BENSERAZIDE HYDROCHLORIDE [Concomitant]
     Active Substance: BENSERAZIDE HYDROCHLORIDE
     Indication: Product used for unknown indication
     Dosage: UNK
     Route: 065
  194. SIMVASTATIN [Concomitant]
     Active Substance: SIMVASTATIN
     Indication: Product used for unknown indication
     Dosage: UNK
     Route: 065
  195. FUROSEMIDE [Concomitant]
     Active Substance: FUROSEMIDE
     Indication: Product used for unknown indication
     Dosage: UNK
     Route: 065
  196. LACTULOSE [Concomitant]
     Active Substance: LACTULOSE
     Indication: Product used for unknown indication
     Dosage: UNK
     Route: 065

REACTIONS (3)
  - General physical health deterioration [Unknown]
  - Product prescribing error [Unknown]
  - Drug interaction [Unknown]

NARRATIVE: CASE EVENT DATE: 20150916
